FAERS Safety Report 6307996-1 (Version None)
Quarter: 2009Q3

REPORT INFORMATION
  Report Type: 
  Country: None (occurrence: None)
  Receive Date: 20090810
  Receipt Date: 20090727
  Transmission Date: 20100115
  Serious: Yes (Disabling)
  Sender: FDA-Public Use
  Company Number: A-NJ2008-22989

PATIENT
  Age: 82 Year
  Sex: Female

DRUGS (1)
  1. VENTAVIS [Suspect]
     Indication: PULMONARY ARTERIAL HYPERTENSION
     Dosage: 2.5 UG, 5 X A DAY, RESPIRATORY
     Route: 055
     Dates: start: 20081203, end: 20090127

REACTIONS (3)
  - BLOOD PRESSURE INCREASED [None]
  - EYE PAIN [None]
  - HEADACHE [None]
